FAERS Safety Report 21949245 (Version 1)
Quarter: 2023Q1

REPORT INFORMATION
  Report Type: Spontaneous
  Country: DE (occurrence: DE)
  Receive Date: 20230203
  Receipt Date: 20230203
  Transmission Date: 20230417
  Serious: Yes (Hospitalization, Other)
  Sender: FDA-Public Use
  Company Number: DE-NORGINE LIMITED-NOR202300220

PATIENT
  Age: 37 Year
  Sex: Female
  Weight: 55 kg

DRUGS (9)
  1. TACROLIMUS [Suspect]
     Active Substance: TACROLIMUS
     Indication: Product used for unknown indication
     Dosage: 0.75 MG, UNKNOWN FREQ.
     Route: 065
     Dates: end: 20221225
  2. TACROLIMUS [Suspect]
     Active Substance: TACROLIMUS
     Indication: Immunosuppressant drug therapy
     Route: 065
     Dates: start: 20221112
  3. XIFAXAN [Suspect]
     Active Substance: RIFAXIMIN
     Indication: Hepatic encephalopathy
     Route: 065
     Dates: start: 202207
  4. Hepa-merz [Concomitant]
     Indication: Hepatic encephalopathy
     Dosage: UNK UNK, UNKNOWN FREQ.
     Route: 065
     Dates: start: 202207
  5. URSODIOL [Concomitant]
     Active Substance: URSODIOL
     Indication: Hepatic encephalopathy
     Route: 065
     Dates: start: 202207
  6. LEVOTHYROXINE [Concomitant]
     Active Substance: LEVOTHYROXINE
     Indication: Hepatic encephalopathy
     Dosage: 0.5 MG, ONCE DAILY
     Route: 065
     Dates: start: 202207
  7. TORSEMIDE [Concomitant]
     Active Substance: TORSEMIDE
     Indication: Hepatic encephalopathy
     Route: 065
     Dates: start: 202207
  8. LACTULOSE [Concomitant]
     Active Substance: LACTULOSE
     Indication: Hepatic encephalopathy
     Dosage: UNK UNK, UNKNOWN FREQ.
     Route: 065
     Dates: start: 202207
  9. ALDACTONE [Concomitant]
     Active Substance: SPIRONOLACTONE
     Indication: Hepatic encephalopathy
     Route: 065
     Dates: start: 202207

REACTIONS (5)
  - Skin discolouration [Unknown]
  - Drug clearance decreased [Unknown]
  - Blood bilirubin increased [Unknown]
  - Generalised oedema [Unknown]
  - Immobile [Unknown]

NARRATIVE: CASE EVENT DATE: 20221101
